FAERS Safety Report 5054352-2 (Version None)
Quarter: 2006Q3

REPORT INFORMATION
  Report Type: 
  Country: None (occurrence: None)
  Receive Date: 20060718
  Receipt Date: 20060714
  Transmission Date: 20061208
  Serious: Yes (Life-Threatening, Hospitalization)
  Sender: FDA-Public Use
  Company Number: JP-BOEHRINGER INGELHEIM PHARMACEUTICALS, INC.-2006-BP-08215NB

PATIENT
  Age: 81 Year
  Sex: Male

DRUGS (3)
  1. MOBIC [Suspect]
     Indication: PAIN
     Route: 048
     Dates: start: 20060524, end: 20060601
  2. TAKEPRON [Suspect]
     Route: 048
     Dates: start: 20060524
  3. ALLOPURINOL [Suspect]
     Route: 048
     Dates: start: 20060524

REACTIONS (2)
  - INTERSTITIAL LUNG DISEASE [None]
  - LYMPHOCYTE STIMULATION TEST POSITIVE [None]
